FAERS Safety Report 23752447 (Version 1)
Quarter: 2024Q2

REPORT INFORMATION
  Report Type: Spontaneous
  Country: BE (occurrence: BE)
  Receive Date: 20240417
  Receipt Date: 20240417
  Transmission Date: 20240715
  Serious: Yes (Other)
  Sender: FDA-Public Use
  Company Number: BE-EXELTIS PHARMACEUTICAL HOLDING, S.L.-2404BE03144

PATIENT
  Age: 36 Year
  Sex: Female

DRUGS (1)
  1. DROSPIRENONE [Suspect]
     Active Substance: DROSPIRENONE
     Indication: Product used for unknown indication
     Dosage: 4 MILLIGRAM, QD
     Route: 048

REACTIONS (1)
  - Hepatic cytolysis [Recovering/Resolving]

NARRATIVE: CASE EVENT DATE: 20230301
